FAERS Safety Report 19265015 (Version 1)
Quarter: 2021Q2

REPORT INFORMATION
  Report Type: Spontaneous
  Country: US (occurrence: US)
  Receive Date: 20210517
  Receipt Date: 20210517
  Transmission Date: 20210717
  Serious: No
  Sender: FDA-Public Use
  Company Number: US-JNJFOC-20210512140

PATIENT
  Age: 51 Year
  Sex: Female

DRUGS (1)
  1. WOMENS ROGAINE UNSCENTED [Suspect]
     Active Substance: MINOXIDIL
     Indication: ALOPECIA
     Route: 065
     Dates: start: 20210503, end: 202105

REACTIONS (3)
  - Application site pain [Recovered/Resolved]
  - Product use in unapproved indication [Unknown]
  - Nervous system disorder [Recovered/Resolved]

NARRATIVE: CASE EVENT DATE: 20210503
